FAERS Safety Report 8219689-4 (Version None)
Quarter: 2012Q1

REPORT INFORMATION
  Report Type: 
  Country: None (occurrence: None)
  Receive Date: 20120319
  Receipt Date: 20120314
  Transmission Date: 20120608
  Serious: Yes (Hospitalization)
  Sender: FDA-Public Use
  Company Number: IT-ROCHE-1048840

PATIENT
  Sex: Male

DRUGS (2)
  1. PEGASYS [Suspect]
     Indication: HEPATITIS C
     Route: 030
     Dates: start: 20111120, end: 20120207
  2. COPEGUS [Concomitant]
     Indication: HEPATITIS C
     Route: 048
     Dates: start: 20111120

REACTIONS (5)
  - RAYNAUD'S PHENOMENON [None]
  - HYPOKINESIA [None]
  - PYREXIA [None]
  - POLYNEUROPATHY [None]
  - PERIPHERAL SENSORY NEUROPATHY [None]
